FAERS Safety Report 15717144 (Version 3)
Quarter: 2022Q4

REPORT INFORMATION
  Report Type: Spontaneous
  Country: DE (occurrence: DE)
  Receive Date: 20181213
  Receipt Date: 20221208
  Transmission Date: 20230113
  Serious: Yes (Life-Threatening, Hospitalization, Disabling, Congenital Anomaly, Other)
  Sender: FDA-Public Use
  Company Number: GXKR2005DE01112

PATIENT
  Weight: 2.9 kg

DRUGS (1)
  1. IBUPROFEN [Suspect]
     Active Substance: IBUPROFEN
     Indication: Foetal exposure during pregnancy
     Dosage: MATERNAL DOSE: NOT PROVIDED
     Route: 064

REACTIONS (13)
  - Tricuspid valve incompetence [Recovered/Resolved]
  - Cardiac hypertrophy [Not Recovered/Not Resolved]
  - Ductus arteriosus premature closure [Recovered/Resolved with Sequelae]
  - Pulmonary valve incompetence [Recovered/Resolved]
  - Neonatal cardiac failure [Recovered/Resolved]
  - Premature baby [Unknown]
  - Cardiac failure [Recovered/Resolved]
  - Apgar score low [Unknown]
  - Cardiomegaly [Unknown]
  - Foetal exposure during pregnancy [Unknown]
  - Right ventricular hypertrophy [Not Recovered/Not Resolved]
  - Exposure during pregnancy [Unknown]
  - Ductus arteriosus stenosis foetal [Unknown]

NARRATIVE: CASE EVENT DATE: 20020901
